FAERS Safety Report 17414995 (Version 2)
Quarter: 2020Q3

REPORT INFORMATION
  Report Type: Spontaneous
  Country: HU (occurrence: HU)
  Receive Date: 20200213
  Receipt Date: 20200302
  Transmission Date: 20201105
  Serious: Yes (Other)
  Sender: FDA-Public Use
  Company Number: HU-MYLANLABS-2020M1015809

PATIENT
  Age: 33 Year
  Sex: Female

DRUGS (5)
  1. CRIZOTINIB [Suspect]
     Active Substance: CRIZOTINIB
     Indication: LUNG ADENOCARCINOMA STAGE IV
     Dosage: UNK
     Route: 065
     Dates: start: 201602, end: 201704
  2. CLARITHROMYCIN. [Suspect]
     Active Substance: CLARITHROMYCIN
     Indication: PRODUCT USED FOR UNKNOWN INDICATION
     Dosage: UNK
     Route: 042
  3. AMOXICILLIN. [Suspect]
     Active Substance: AMOXICILLIN
     Indication: BRONCHITIS
     Dosage: UNK
     Route: 065
     Dates: start: 201510
  4. CERITINIB [Suspect]
     Active Substance: CERITINIB
     Indication: PRODUCT USED FOR UNKNOWN INDICATION
     Dosage: UNK
     Route: 065
     Dates: start: 201704, end: 201706
  5. ALECTINIB. [Suspect]
     Active Substance: ALECTINIB
     Indication: METASTASES TO CENTRAL NERVOUS SYSTEM
     Dosage: UNK
     Route: 065
     Dates: start: 201707, end: 201808

REACTIONS (21)
  - Metastases to thorax [Unknown]
  - Metastases to bone [Unknown]
  - Blood alkaline phosphatase increased [Unknown]
  - Maternal exposure during pregnancy [Unknown]
  - Metastases to central nervous system [Unknown]
  - Drug intolerance [Unknown]
  - General physical health deterioration [Unknown]
  - Frequent bowel movements [Unknown]
  - Atelectasis [Unknown]
  - Pleural effusion [Unknown]
  - C-reactive protein increased [Unknown]
  - Gastroenteritis [Unknown]
  - Fatigue [Unknown]
  - Asthenia [Unknown]
  - Lung adenocarcinoma [Unknown]
  - Haemangioma [Unknown]
  - Haemoglobin decreased [Unknown]
  - Vomiting [Unknown]
  - Adenocarcinoma metastatic [Unknown]
  - Dyspnoea [Unknown]
  - Renal disorder [Unknown]

NARRATIVE: CASE EVENT DATE: 201511
